FAERS Safety Report 15706274 (Version 2)
Quarter: 2019Q1

REPORT INFORMATION
  Report Type: Spontaneous
  Country: US (occurrence: US)
  Receive Date: 20181210
  Receipt Date: 20190309
  Transmission Date: 20190417
  Serious: Yes (Other)
  Sender: FDA-Public Use
  Company Number: PHEH2018US051838

PATIENT
  Age: 59 Year
  Sex: Male

DRUGS (1)
  1. TASIGNA [Suspect]
     Active Substance: NILOTINIB
     Indication: CHRONIC MYELOID LEUKAEMIA
     Dosage: 2 DF, BID
     Route: 048
     Dates: start: 20140101

REACTIONS (15)
  - Conjunctival haemorrhage [Unknown]
  - Ligament sprain [Unknown]
  - Lymphadenitis [Unknown]
  - Hyperlipidaemia [Unknown]
  - Myocardial infarction [Unknown]
  - Iron deficiency anaemia [Unknown]
  - Dyslipidaemia [Unknown]
  - Hypothyroidism [Unknown]
  - Rash [Unknown]
  - Second primary malignancy [Unknown]
  - Chronic sinusitis [Unknown]
  - Coronary artery disease [Unknown]
  - Pharyngitis [Unknown]
  - Peripheral arterial occlusive disease [Unknown]
  - Prostate cancer [Unknown]

NARRATIVE: CASE EVENT DATE: 20170321
